FAERS Safety Report 10678785 (Version 5)
Quarter: 2016Q3

REPORT INFORMATION
  Report Type: Report from Study
  Country: US (occurrence: US)
  Receive Date: 20141229
  Receipt Date: 20160829
  Transmission Date: 20161109
  Serious: Yes (Other)
  Sender: FDA-Public Use
  Company Number: US-SA-2014SA076253

PATIENT
  Age: 61 Year
  Sex: Female

DRUGS (6)
  1. AMPYRA [Suspect]
     Active Substance: DALFAMPRIDINE
     Indication: MULTIPLE SCLEROSIS
     Route: 065
     Dates: start: 20130101
  2. NITROFURANTOIN. [Concomitant]
     Active Substance: NITROFURANTOIN
     Dosage: 50 MG
  3. TYLENOL [Concomitant]
     Active Substance: ACETAMINOPHEN
  4. AUBAGIO [Suspect]
     Active Substance: TERIFLUNOMIDE
     Indication: MULTIPLE SCLEROSIS
     Route: 048
     Dates: start: 20131118
  5. TYLENOL [Concomitant]
     Active Substance: ACETAMINOPHEN
  6. OXYCODONE [Concomitant]
     Active Substance: OXYCODONE

REACTIONS (14)
  - Nuclear magnetic resonance imaging abnormal [Unknown]
  - Muscle atrophy [Recovered/Resolved]
  - Hyperkeratosis [Not Recovered/Not Resolved]
  - Orthosis user [Recovered/Resolved]
  - Asthenia [Unknown]
  - Nausea [Recovered/Resolved]
  - Pollakiuria [Unknown]
  - Abdominal pain [Recovered/Resolved]
  - Anaemia [Not Recovered/Not Resolved]
  - Drug ineffective [Unknown]
  - Chest pain [Recovered/Resolved]
  - Multiple sclerosis relapse [Unknown]
  - Blood sodium decreased [Not Recovered/Not Resolved]
  - Ear pain [Recovered/Resolved]

NARRATIVE: CASE EVENT DATE: 2015
